FAERS Safety Report 8618269-6 (Version None)
Quarter: 2012Q3

REPORT INFORMATION
  Report Type: 
  Country: None (occurrence: None)
  Receive Date: 20120824
  Receipt Date: 20120814
  Transmission Date: 20120928
  Serious: Yes (Hospitalization)
  Sender: FDA-Public Use
  Company Number: US-BIOGENIDEC-2012BI027037

PATIENT
  Age: 53 Year
  Sex: Female

DRUGS (1)
  1. TYSABRI [Suspect]
     Indication: MULTIPLE SCLEROSIS
     Route: 042
     Dates: start: 20071004

REACTIONS (5)
  - CHEST PAIN [None]
  - LIMB INJURY [None]
  - MYOSITIS [None]
  - DRUG SPECIFIC ANTIBODY PRESENT [None]
  - STAPHYLOCOCCAL INFECTION [None]
